FAERS Safety Report 25429915 (Version 1)
Quarter: 2025Q2

REPORT INFORMATION
  Report Type: Spontaneous
  Country: IL (occurrence: IL)
  Receive Date: 20250612
  Receipt Date: 20250612
  Transmission Date: 20250717
  Serious: Yes (Other)
  Sender: MERCK SHARP & DOHME LLC
  Company Number: IL-009507513-2293504

PATIENT
  Age: 79 Year
  Sex: Female

DRUGS (2)
  1. KEYTRUDA [Suspect]
     Active Substance: PEMBROLIZUMAB
     Indication: Squamous cell carcinoma of the oral cavity
     Dates: start: 202309, end: 202403
  2. KEYTRUDA [Suspect]
     Active Substance: PEMBROLIZUMAB
     Indication: Squamous cell carcinoma of the oral cavity

REACTIONS (9)
  - Haemoglobin abnormal [Recovered/Resolved]
  - Tumour inflammation [Unknown]
  - Gastrostomy [Unknown]
  - Malignant neoplasm progression [Unknown]
  - Hypomagnesaemia [Recovered/Resolved]
  - Hypophosphataemia [Recovered/Resolved]
  - Tumour necrosis [Unknown]
  - Product use in unapproved indication [Unknown]
  - Osteolysis [Recovered/Resolved]

NARRATIVE: CASE EVENT DATE: 20230101
